FAERS Safety Report 9143191 (Version 1)
Quarter: 2013Q1

REPORT INFORMATION
  Report Type: Spontaneous
  Country: US (occurrence: US)
  Receive Date: 20130306
  Receipt Date: 20130306
  Transmission Date: 20140127
  Serious: No
  Sender: FDA-Public Use
  Company Number: US-ENDO PHARMACEUTICALS INC.-OPER20100129

PATIENT
  Sex: Female

DRUGS (2)
  1. OPANA ER [Suspect]
     Indication: PAIN
     Dosage: 7.5 MG BID - 10 MG BID
     Route: 048
  2. MS CONTIN [Concomitant]
     Indication: PAIN
     Dosage: TID
     Route: 065

REACTIONS (3)
  - Adverse drug reaction [Unknown]
  - Drug effect incomplete [Unknown]
  - Breakthrough pain [Unknown]
